FAERS Safety Report 5333933-2 (Version None)
Quarter: 2007Q2

REPORT INFORMATION
  Report Type: 
  Country: None (occurrence: None)
  Receive Date: 20070524
  Receipt Date: 20070515
  Transmission Date: 20071010
  Serious: Yes (Other)
  Sender: FDA-Public Use
  Company Number: US-SANOFI-SYNTHELABO-A03200702115

PATIENT
  Sex: Male
  Weight: 102.1 kg

DRUGS (3)
  1. AMBIEN [Suspect]
     Indication: MIDDLE INSOMNIA
     Route: 048
     Dates: start: 20051215, end: 20060401
  2. ALPRAZOLAM [Concomitant]
     Route: 048
  3. ALCOHOL [Concomitant]

REACTIONS (7)
  - AMNESIA [None]
  - EATING DISORDER [None]
  - IMPAIRED DRIVING ABILITY [None]
  - LACERATION [None]
  - LOSS OF CONSCIOUSNESS [None]
  - ROAD TRAFFIC ACCIDENT [None]
  - SLEEP WALKING [None]
